FAERS Safety Report 8987272 (Version 1)
Quarter: 2012Q4

REPORT INFORMATION
  Report Type: 
  Country: JP (occurrence: JP)
  Receive Date: 20121227
  Receipt Date: 20121227
  Transmission Date: 20130627
  Serious: Yes (Death)
  Sender: FDA-Public Use
  Company Number: JP-SHIRE-ALL1-2012-06538

PATIENT
  Age: 57 Year
  Sex: Female

DRUGS (1)
  1. FOSRENOL [Suspect]
     Indication: HYPERPHOSPHATAEMIA
     Dosage: 750 mg, Unknown (total daily dose)
     Route: 048
     Dates: start: 20120618, end: 20121021

REACTIONS (2)
  - Disseminated intravascular coagulation [Fatal]
  - Arthritis [Unknown]
